FAERS Safety Report 9822248 (Version 3)
Quarter: 2014Q1

REPORT INFORMATION
  Report Type: Spontaneous
  Country: IT (occurrence: IT)
  Receive Date: 20140116
  Receipt Date: 20140317
  Transmission Date: 20141002
  Serious: Yes (Other)
  Sender: FDA-Public Use
  Company Number: IT-SA-2014SA002824

PATIENT
  Age: 75 Year
  Sex: Male

DRUGS (6)
  1. LASIX [Suspect]
     Indication: HYPERTENSION
     Dosage: STRENGTH: 25 MG DOSE:1 UNIT(S)
     Route: 048
     Dates: start: 20131216, end: 20131222
  2. CARDURA [Suspect]
     Indication: HYPERTENSION
     Route: 048
     Dates: start: 20131216, end: 20131222
  3. NORVASC [Suspect]
     Indication: HYPERTENSION
     Dosage: STRENGTH: 10 MG DOSE:1 UNIT(S)
     Route: 048
     Dates: start: 20131216, end: 20131222
  4. ZESTRIL [Concomitant]
     Dosage: STRENGTH: 20 MG DOSE:1 UNIT(S)
     Route: 048
  5. RYTMONORM [Concomitant]
     Dosage: STRENGTH: 150 MG DOSE:3 UNIT(S)
     Route: 048
  6. CARDIOASPIRIN [Concomitant]
     Dosage: STRENGTH: 100 MG DOSE:1 UNIT(S)
     Route: 048

REACTIONS (3)
  - Malaise [Unknown]
  - Hyperhidrosis [Unknown]
  - Orthostatic hypotension [Unknown]
